FAERS Safety Report 7877876-9 (Version None)
Quarter: 2011Q4

REPORT INFORMATION
  Report Type: 
  Country: None (occurrence: None)
  Receive Date: 20111031
  Receipt Date: 20111031
  Transmission Date: 20120403
  Serious: No
  Sender: FDA-Public Use
  Company Number: None

PATIENT
  Age: 26 Year
  Sex: Female
  Weight: 52.163 kg

DRUGS (2)
  1. SULFAMETHOXAZOLE AND TRIMETHOPRIM DOUBLE STRENGTH [Suspect]
     Indication: URINARY TRACT INFECTION
     Dosage: 2
     Route: 048
     Dates: start: 20111027, end: 20111030
  2. SULFAMETHOXAZOLE AND TRIMETHOPRIM DOUBLE STRENGTH [Suspect]
     Indication: CYSTITIS
     Dosage: 2
     Route: 048
     Dates: start: 20111027, end: 20111030

REACTIONS (7)
  - APHAGIA [None]
  - PYREXIA [None]
  - CHILLS [None]
  - DYSSTASIA [None]
  - INSOMNIA [None]
  - RENAL PAIN [None]
  - INFLUENZA LIKE ILLNESS [None]
